FAERS Safety Report 10035497 (Version 2)
Quarter: 2014Q1

REPORT INFORMATION
  Report Type: Spontaneous
  Country: US (occurrence: US)
  Receive Date: 20140325
  Receipt Date: 20140331
  Transmission Date: 20141002
  Serious: No
  Sender: FDA-Public Use
  Company Number: US-PFIZER INC-2014083540

PATIENT
  Sex: Female

DRUGS (2)
  1. CYTOMEL [Suspect]
     Dosage: UNK
     Dates: start: 201303
  2. SYNTHROID [Suspect]
     Dosage: UNK
     Dates: start: 2013

REACTIONS (3)
  - Alopecia [Not Recovered/Not Resolved]
  - Thyroid function test abnormal [Unknown]
  - Malaise [Unknown]
